FAERS Safety Report 8250706-1 (Version None)
Quarter: 2012Q2

REPORT INFORMATION
  Report Type: 
  Country: None (occurrence: None)
  Receive Date: 20120402
  Receipt Date: 20120329
  Transmission Date: 20120825
  Serious: Yes (Death, Hospitalization)
  Sender: FDA-Public Use
  Company Number: BR-ASTRAZENECA-2012SE21213

PATIENT
  Age: 81 Year
  Sex: Female

DRUGS (2)
  1. TRAMADOL HYDROCHLORIDE [Concomitant]
     Indication: GASTRIC CANCER
     Dates: start: 20110101
  2. SEROQUEL [Suspect]
     Indication: RESTLESSNESS
     Route: 048
     Dates: start: 20110901

REACTIONS (2)
  - METASTASIS [None]
  - OFF LABEL USE [None]
